FAERS Safety Report 8484761-0 (Version None)
Quarter: 2012Q3

REPORT INFORMATION
  Report Type: 
  Country: None (occurrence: None)
  Receive Date: 20120703
  Receipt Date: 20120625
  Transmission Date: 20120928
  Serious: Yes (Hospitalization)
  Sender: FDA-Public Use
  Company Number: US-BAYER-2011-036933

PATIENT
  Age: 41 Year
  Sex: Female

DRUGS (11)
  1. VITAMIN D [Concomitant]
     Dosage: UNK
     Dates: start: 20090323
  2. CYCLOBENZAPRINE HCL [Concomitant]
     Dosage: 15 MG, 1-2 DAILY
     Route: 048
     Dates: start: 20090323
  3. ZANAFLEX [Concomitant]
     Dosage: 2 MG,1-2 BID
     Dates: start: 20090323
  4. YAZ [Suspect]
     Indication: UNDERWEIGHT
  5. ANTISPASMODIC [Concomitant]
     Indication: TORTICOLLIS
  6. VALIUM [Concomitant]
  7. BOTOX [Concomitant]
     Indication: TORTICOLLIS
  8. DIAZEPAM [Concomitant]
     Dosage: 10 MG, UNK
     Dates: start: 20090323
  9. YASMIN [Suspect]
  10. DOXY-CAPS [Concomitant]
     Dosage: 100 MG, UNK
     Dates: start: 20090323
  11. ULTRAM [Concomitant]
     Dosage: 1-2 EVERY 6 HOURS AS NEEDED
     Route: 048
     Dates: start: 20090323

REACTIONS (3)
  - PAIN [None]
  - PULMONARY EMBOLISM [None]
  - INJURY [None]
